FAERS Safety Report 5132932-3 (Version None)
Quarter: 2006Q4

REPORT INFORMATION
  Report Type: 
  Country: None (occurrence: None)
  Receive Date: 20061017
  Receipt Date: 20061002
  Transmission Date: 20070319
  Serious: Yes (Hospitalization)
  Sender: FDA-Public Use
  Company Number: 863#3#2006-00011

PATIENT
  Age: 7 Year
  Sex: Male

DRUGS (1)
  1. IDROLAX (MACROGOL) [Suspect]
     Dosage: 10 G (10 G 1 IN 1 DAY (S)) ORAL
     Route: 048
     Dates: start: 20050418, end: 20050418

REACTIONS (2)
  - ANGIONEUROTIC OEDEMA [None]
  - HYPOTENSION [None]
